FAERS Safety Report 25554138 (Version 1)
Quarter: 2025Q3

REPORT INFORMATION
  Report Type: Spontaneous
  Country: US (occurrence: None)
  Receive Date: 20250714
  Receipt Date: 20250714
  Transmission Date: 20251020
  Serious: Yes (Life-Threatening, Disabling, Other)
  Sender: FDA-CTU
  Company Number: None

PATIENT
  Age: 35 Year
  Sex: Female
  Weight: 60.3 kg

DRUGS (1)
  1. FLUOXETINE [Suspect]
     Active Substance: FLUOXETINE HYDROCHLORIDE
     Indication: Depression
     Dates: start: 20110701, end: 20220315

REACTIONS (10)
  - Withdrawal syndrome [None]
  - Feeling abnormal [None]
  - Suicidal ideation [None]
  - Depersonalisation/derealisation disorder [None]
  - Brain fog [None]
  - Electric shock sensation [None]
  - Fear [None]
  - Derealisation [None]
  - Bedridden [None]
  - Gait disturbance [None]

NARRATIVE: CASE EVENT DATE: 20220315
